FAERS Safety Report 8065461-8 (Version None)
Quarter: 2012Q1

REPORT INFORMATION
  Report Type: 
  Country: None (occurrence: None)
  Receive Date: 20120117
  Receipt Date: 20120103
  Transmission Date: 20120608
  Serious: Yes (Hospitalization)
  Sender: FDA-Public Use
  Company Number: DSA_47138_2011

PATIENT
  Age: 43 Year
  Sex: Female

DRUGS (1)
  1. ELIDEL [Suspect]
     Indication: PRODUCT USED FOR UNKNOWN INDICATION
     Dosage: DF TOPICAL
     Route: 061

REACTIONS (3)
  - METASTASES TO BONE [None]
  - BREAST CANCER FEMALE [None]
  - METASTASES TO LYMPH NODES [None]
